FAERS Safety Report 7997607-1 (Version None)
Quarter: 2011Q4

REPORT INFORMATION
  Report Type: 
  Country: None (occurrence: None)
  Receive Date: 20111221
  Receipt Date: 20111219
  Transmission Date: 20120403
  Serious: Yes (Death)
  Sender: FDA-Public Use
  Company Number: CN-JNJFOC-20111208437

PATIENT
  Age: 20 Year
  Sex: Female

DRUGS (3)
  1. RISPERDAL [Suspect]
     Indication: SCHIZOPHRENIA
     Dosage: NIGHT AND MORNING
     Route: 048
     Dates: start: 20101001, end: 20110524
  2. RISPERDAL [Suspect]
     Dosage: TWICE A DAY
     Route: 065
     Dates: start: 20100101, end: 20101001
  3. RISPERDAL [Suspect]
     Dosage: NIGHT AND MORNING
     Route: 048
     Dates: start: 20080101, end: 20100101

REACTIONS (3)
  - DRUG INEFFECTIVE [None]
  - HALLUCINATION [None]
  - COMPLETED SUICIDE [None]
